FAERS Safety Report 11270879 (Version 1)
Quarter: 2015Q3

REPORT INFORMATION
  Report Type: Spontaneous
  Country: GB (occurrence: GB)
  Receive Date: 20150714
  Receipt Date: 20150714
  Transmission Date: 20151125
  Serious: Yes (Hospitalization)
  Sender: FDA-Public Use
  Company Number: GB-TEVA-577361ACC

PATIENT
  Age: 32 Year
  Sex: Female
  Weight: 63 kg

DRUGS (4)
  1. PIRITON [Suspect]
     Active Substance: CHLORPHENIRAMINE MALEATE
  2. CHLORPHENAMINE [Concomitant]
     Active Substance: CHLORPHENIRAMINE MALEATE
  3. CETIRIZINE [Suspect]
     Active Substance: CETIRIZINE HYDROCHLORIDE
  4. FEXOFENADINE [Suspect]
     Active Substance: FEXOFENADINE\FEXOFENADINE HYDROCHLORIDE
     Indication: SEASONAL ALLERGY
     Route: 048
     Dates: start: 20150409, end: 20150423

REACTIONS (16)
  - Malaise [Recovered/Resolved]
  - Wheezing [Recovered/Resolved]
  - Electrocardiogram QT prolonged [Recovered/Resolved]
  - Rash [Recovered/Resolved]
  - Oral pruritus [Recovered/Resolved]
  - Presyncope [Recovered/Resolved]
  - Chest discomfort [Recovered/Resolved]
  - Abdominal pain [Recovered/Resolved]
  - Food allergy [Recovered/Resolved]
  - Arrhythmia [Recovered/Resolved]
  - Dyspnoea [Recovered/Resolved]
  - Electrocardiogram T wave inversion [Recovered/Resolved]
  - Heart rate irregular [Recovered/Resolved]
  - Dizziness [Recovered/Resolved]
  - Orthostatic hypotension [Recovered/Resolved]
  - Diarrhoea [Recovered/Resolved]

NARRATIVE: CASE EVENT DATE: 20150411
